FAERS Safety Report 25518993 (Version 2)
Quarter: 2025Q3

REPORT INFORMATION
  Report Type: Report from Study
  Country: US (occurrence: US)
  Receive Date: 20250704
  Receipt Date: 20250724
  Transmission Date: 20251021
  Serious: Yes (Hospitalization)
  Sender: ABBVIE
  Company Number: US-ABBVIE-6355654

PATIENT
  Age: 69 Year
  Sex: Male

DRUGS (2)
  1. VENCLEXTA [Suspect]
     Active Substance: VENETOCLAX
     Indication: Chronic lymphocytic leukaemia
     Route: 048
     Dates: start: 202504
  2. VENCLEXTA [Suspect]
     Active Substance: VENETOCLAX
     Indication: Chronic lymphocytic leukaemia
     Route: 048
     Dates: start: 20250703

REACTIONS (6)
  - Renal failure [Unknown]
  - Pleural effusion [Unknown]
  - Dehydration [Unknown]
  - Cardiac disorder [Unknown]
  - Inflammation [Unknown]
  - Hypervolaemia [Unknown]

NARRATIVE: CASE EVENT DATE: 20250101
